FAERS Safety Report 7861399-7 (Version None)
Quarter: 2011Q4

REPORT INFORMATION
  Report Type: 
  Country: None (occurrence: None)
  Receive Date: 20111027
  Receipt Date: 20111020
  Transmission Date: 20120403
  Serious: Yes (Hospitalization)
  Sender: FDA-Public Use
  Company Number: FR-PFIZER INC-2011252715

PATIENT
  Age: 48 Year
  Sex: Female

DRUGS (2)
  1. LUTENYL [Suspect]
     Indication: HORMONE THERAPY
     Dosage: UNK
     Route: 048
     Dates: start: 20110622, end: 20110703
  2. IBUPROFEN (ADVIL) [Suspect]
     Indication: HEADACHE
     Dosage: UNK %, SINGLE
     Route: 048
     Dates: start: 20110626, end: 20110702

REACTIONS (1)
  - ERYTHEMA MULTIFORME [None]
